FAERS Safety Report 6086620-X (Version None)
Quarter: 2009Q1

REPORT INFORMATION
  Report Type: 
  Country: None (occurrence: None)
  Receive Date: 20090223
  Receipt Date: 20090211
  Transmission Date: 20090719
  Serious: Yes (Hospitalization)
  Sender: FDA-Public Use
  Company Number: GB-AMGEN-US134413

PATIENT
  Sex: Female
  Weight: 81 kg

DRUGS (12)
  1. ENBREL [Suspect]
     Indication: RHEUMATOID ARTHRITIS
     Route: 058
     Dates: start: 20040715, end: 20040915
  2. NABUMETONE [Concomitant]
     Indication: RHEUMATOID ARTHRITIS
     Route: 048
  3. ACETYLSALICYLIC ACID SRT [Concomitant]
     Indication: MYOCARDIAL ISCHAEMIA
     Dosage: 75MG, FREQUENCY UNKNOWN
     Route: 048
  4. ATENOLOL [Concomitant]
     Dosage: UNKNOWN
     Route: 065
  5. ISOSORBIDE MONONITRATE [Concomitant]
     Indication: CARDIAC FAILURE CONGESTIVE
     Dosage: UNKNOWN
     Route: 065
  6. ISOSORBIDE MONONITRATE [Concomitant]
     Route: 048
  7. LANSOPRAZOLE [Concomitant]
     Indication: PEPTIC ULCER
     Dosage: 30MG, FREQUENCY NOT STATED
     Route: 048
  8. PARACETAMOL [Concomitant]
     Dosage: UNKNOWN
     Route: 065
  9. SIMVASTATIN [Concomitant]
     Indication: BLOOD CHOLESTEROL INCREASED
     Dosage: 40MG,FREQUENCY NOT STATED
     Route: 048
  10. NEFOPAM [Concomitant]
     Dosage: UNKNOWN
     Route: 065
  11. RAMIPRIL [Concomitant]
     Indication: BLOOD PRESSURE INCREASED
     Dosage: 5MG, FREQUENCY UNKNOWN
     Route: 048
  12. FOLIC ACID [Concomitant]
     Dosage: UNKNOWN
     Route: 065

REACTIONS (3)
  - MASS [None]
  - PNEUMONIA [None]
  - SERRATIA INFECTION [None]
